FAERS Safety Report 4731369-6 (Version None)
Quarter: 2005Q3

REPORT INFORMATION
  Report Type: 
  Country: None (occurrence: None)
  Receive Date: 20050719
  Receipt Date: 20041018
  Transmission Date: 20060218
  Serious: Yes (Other)
  Sender: FDA-Public Use
  Company Number: 206420

PATIENT
  Age: 59 Year
  Sex: Female
  Weight: 50.8029 kg

DRUGS (9)
  1. AVONEX [Suspect]
     Indication: MULTIPLE SCLEROSIS
     Dosage: 30 UG; QW; IM
     Route: 030
     Dates: start: 20021201
  2. AVONEX [Suspect]
     Indication: MULTIPLE SCLEROSIS
     Dosage: 30 UG; QW; IM
     Route: 030
  3. PHENOBARBITAL [Concomitant]
  4. TOPAMAX [Concomitant]
  5. NEXIUM [Concomitant]
  6. LITHIUM [Concomitant]
  7. LEXAPRO [Concomitant]
  8. POTASSIUM CHLORIDE [Concomitant]
  9. CODEINE [Concomitant]

REACTIONS (9)
  - CATARACT [None]
  - CONVULSION [None]
  - COUGH [None]
  - HALLUCINATION [None]
  - IMMUNOGLOBULINS DECREASED [None]
  - OESOPHAGEAL STENOSIS [None]
  - PAIN IN EXTREMITY [None]
  - POSTMENOPAUSAL HAEMORRHAGE [None]
  - TOOTH INFECTION [None]
